FAERS Safety Report 19957093 (Version 1)
Quarter: 2021Q4

REPORT INFORMATION
  Report Type: Report from Study
  Country: ES (occurrence: ES)
  Receive Date: 20211014
  Receipt Date: 20211014
  Transmission Date: 20220303
  Serious: Yes (Hospitalization, Other)
  Sender: FDA-Public Use
  Company Number: ES-AMGEN-ESPCT2021092999

PATIENT
  Age: 79 Year
  Sex: Female
  Weight: 44.5 kg

DRUGS (9)
  1. CARFILZOMIB [Suspect]
     Active Substance: CARFILZOMIB
     Indication: Plasma cell myeloma
     Dosage: 56 MILLIGRAM, PER CHEMO REGIM
     Route: 042
     Dates: start: 20210526
  2. LENALIDOMIDE [Suspect]
     Active Substance: LENALIDOMIDE
     Indication: Plasma cell myeloma
     Dosage: 15 MILLIGRAM, PER CHEMO REGIM
     Route: 048
     Dates: start: 20210526
  3. DEXAMETHASONE [Suspect]
     Active Substance: DEXAMETHASONE
     Indication: Plasma cell myeloma
     Dosage: 20 MILLIGRAM, PER CHEMO REGIM
     Route: 048
     Dates: start: 20210526
  4. DARATUMUMAB [Suspect]
     Active Substance: DARATUMUMAB
     Indication: Plasma cell myeloma
     Dosage: UNK
     Route: 065
  5. CALCIFEDIOL [Concomitant]
     Active Substance: CALCIFEDIOL
     Indication: Neoplasm malignant
     Dosage: 0.266 MILLIGRAM
     Route: 048
     Dates: start: 20191104
  6. PANTOPRAZOLE [Concomitant]
     Active Substance: PANTOPRAZOLE
     Indication: Peptic ulcer
     Dosage: 20 MILLIGRAM
     Route: 048
     Dates: start: 20191104
  7. FUROSEMIDE [Concomitant]
     Active Substance: FUROSEMIDE
     Indication: Cardiac failure
     Dosage: 40 MILLIGRAM
     Route: 048
     Dates: start: 20191104
  8. ACYCLOVIR [Concomitant]
     Active Substance: ACYCLOVIR
     Indication: Antiviral prophylaxis
     Dosage: 800 MILLIGRAM
     Route: 048
     Dates: start: 20191216
  9. ENOXAPARIN SODIUM [Concomitant]
     Active Substance: ENOXAPARIN SODIUM
     Indication: Thrombosis prophylaxis
     Dosage: 60 MILLIGRAM
     Route: 030
     Dates: start: 20200716

REACTIONS (2)
  - Escherichia sepsis [Recovered/Resolved]
  - Neutropenia [Recovered/Resolved]

NARRATIVE: CASE EVENT DATE: 20210609
